FAERS Safety Report 12428175 (Version 1)
Quarter: 2016Q2

REPORT INFORMATION
  Report Type: Spontaneous
  Country: US (occurrence: US)
  Receive Date: 20160602
  Receipt Date: 20160602
  Transmission Date: 20160815
  Serious: Yes (Hospitalization, Other)
  Sender: FDA-Public Use
  Company Number: US-IGSA-GTI004246

PATIENT
  Age: 34 Year
  Sex: Male

DRUGS (1)
  1. HYPERHEP B S/D [Suspect]
     Active Substance: HUMAN HEPATITIS B VIRUS IMMUNE GLOBULIN
     Indication: EXPOSURE TO COMMUNICABLE DISEASE
     Route: 030
     Dates: start: 20160517

REACTIONS (4)
  - Bacterial infection [Recovered/Resolved]
  - Bacteraemia [Recovered/Resolved]
  - Chills [Recovered/Resolved]
  - Pyrexia [Recovered/Resolved]

NARRATIVE: CASE EVENT DATE: 20160517
